FAERS Safety Report 5659482-X (Version None)
Quarter: 2008Q1

REPORT INFORMATION
  Report Type: 
  Country: None (occurrence: None)
  Receive Date: 20080311
  Receipt Date: 20080307
  Transmission Date: 20080703
  Serious: Yes (Life-Threatening, Hospitalization, Other)
  Sender: FDA-Public Use
  Company Number: PHBS2008CH03048

PATIENT
  Age: 16 Year
  Sex: Male

DRUGS (12)
  1. PROSTIN E2 [Suspect]
     Indication: LIVER TRANSPLANT
     Route: 042
     Dates: start: 20080124, end: 20080127
  2. VANCOMYCIN [Suspect]
     Route: 042
     Dates: start: 20080125
  3. ROCEPHIN [Concomitant]
     Dates: start: 20080124, end: 20080124
  4. METRONIDAZOL ^ALPHARMA^ [Concomitant]
     Route: 042
     Dates: start: 20080124
  5. MERONEM [Concomitant]
     Route: 042
     Dates: start: 20080125
  6. DIFLUCAN [Concomitant]
     Dates: start: 20080125, end: 20080131
  7. CYMEVENE [Concomitant]
     Dates: start: 20080125
  8. SIMULECT [Suspect]
     Indication: LIVER TRANSPLANT
     Dosage: 20 MG, ONCE/SINGLE
     Dates: start: 20080124, end: 20080124
  9. SIMULECT [Suspect]
     Dosage: 20 MG, ONCE/SINGLE
     Dates: start: 20080128, end: 20080128
  10. DOBUTAMIN [Concomitant]
     Route: 042
     Dates: start: 20080124, end: 20080203
  11. NORADRENALINE [Concomitant]
     Dosage: 2.1 G/D
     Route: 042
     Dates: start: 20080124, end: 20080203
  12. APRICAL [Concomitant]
     Dates: start: 20080128

REACTIONS (9)
  - ACUTE RESPIRATORY DISTRESS SYNDROME [None]
  - C-REACTIVE PROTEIN INCREASED [None]
  - HAEMODIALYSIS [None]
  - HAEMODYNAMIC INSTABILITY [None]
  - LIVER TRANSPLANT REJECTION [None]
  - PLEURAL EFFUSION [None]
  - PYREXIA [None]
  - SURGERY [None]
  - SYSTEMIC INFLAMMATORY RESPONSE SYNDROME [None]
